FAERS Safety Report 13895853 (Version 1)
Quarter: 2017Q3

REPORT INFORMATION
  Report Type: Report from Study
  Country: US (occurrence: US)
  Receive Date: 20170823
  Receipt Date: 20170823
  Transmission Date: 20171127
  Serious: Yes (Death)
  Sender: FDA-Public Use
  Company Number: PHEH2017US026807

PATIENT
  Age: 79 Year
  Sex: Male

DRUGS (2)
  1. TAFINLAR [Suspect]
     Active Substance: DABRAFENIB MESYLATE
     Indication: PRODUCT USED FOR UNKNOWN INDICATION
     Dosage: 75 MG, TID (1CAP QAM AND 2 CAP Q PM)
     Route: 048
     Dates: start: 20170803
  2. MEKINIST [Suspect]
     Active Substance: TRAMETINIB DIMETHYL SULFOXIDE
     Indication: PRODUCT USED FOR UNKNOWN INDICATION
     Dosage: 2 MG, QD (1 PILL ONCES A DAY)
     Route: 048
     Dates: start: 20170803

REACTIONS (1)
  - Death [Fatal]

NARRATIVE: CASE EVENT DATE: 20170819
